FAERS Safety Report 8803988 (Version 3)
Quarter: 2012Q4

REPORT INFORMATION
  Report Type: Report from Study
  Country: GB (occurrence: GB)
  Receive Date: 20120924
  Receipt Date: 20121022
  Transmission Date: 20130627
  Serious: Yes (Hospitalization)
  Sender: FDA-Public Use
  Company Number: GB-PFIZER INC-2012131249

PATIENT
  Age: 48 Year
  Sex: Female
  Weight: 75.6 kg

DRUGS (1)
  1. AXITINIB [Suspect]
     Indication: ANGIOSARCOMA
     Dosage: 3 mg unit dose, UNK
     Dates: start: 20120322

REACTIONS (2)
  - Pneumothorax [Recovered/Resolved with Sequelae]
  - Venous thrombosis [Not Recovered/Not Resolved]
